FAERS Safety Report 15407531 (Version 1)
Quarter: 2018Q3

REPORT INFORMATION
  Report Type: Spontaneous
  Country: US (occurrence: US)
  Receive Date: 20180920
  Receipt Date: 20180920
  Transmission Date: 20181010
  Serious: No
  Sender: FDA-Public Use
  Company Number: US-AMARIN PHARMA, INC.-2018AMR000091

PATIENT
  Age: 80 Year
  Sex: Female

DRUGS (3)
  1. VASCEPA [Suspect]
     Active Substance: ICOSAPENT ETHYL
     Indication: HAND FRACTURE
     Route: 065
     Dates: start: 201802
  2. DIABETES INJECTION [Concomitant]
     Indication: DIABETES MELLITUS
  3. VASCEPA [Suspect]
     Active Substance: ICOSAPENT ETHYL
     Indication: URINARY TRACT INFECTION
     Route: 065
     Dates: start: 20170828

REACTIONS (3)
  - Therapeutic response unexpected [Not Recovered/Not Resolved]
  - Off label use [Not Recovered/Not Resolved]
  - Diarrhoea [Recovered/Resolved]

NARRATIVE: CASE EVENT DATE: 201708
